FAERS Safety Report 9669287 (Version 1)
Quarter: 2013Q4

REPORT INFORMATION
  Report Type: Spontaneous
  Country: DE (occurrence: DE)
  Receive Date: 20131105
  Receipt Date: 20131105
  Transmission Date: 20140711
  Serious: Yes (Other)
  Sender: FDA-Public Use
  Company Number: DE-DRREDDYS-GER/GER/13/0035278

PATIENT
  Sex: 0

DRUGS (3)
  1. SIMVASTATIN [Suspect]
     Indication: TYPE IIA HYPERLIPIDAEMIA
     Route: 048
     Dates: start: 201306, end: 201307
  2. ATORVASTATIN [Suspect]
     Indication: TYPE IIA HYPERLIPIDAEMIA
     Route: 048
     Dates: start: 201308, end: 201309
  3. EZETROL [Suspect]
     Indication: TYPE IIA HYPERLIPIDAEMIA
     Route: 048
     Dates: start: 201308, end: 201309

REACTIONS (3)
  - C-reactive protein increased [Unknown]
  - Gastrointestinal pain [Recovered/Resolved]
  - Myalgia [Recovered/Resolved]
